FAERS Safety Report 6967229-X (Version None)
Quarter: 2010Q3

REPORT INFORMATION
  Report Type: 
  Country: None (occurrence: None)
  Receive Date: 20100907
  Receipt Date: 20100824
  Transmission Date: 20110219
  Serious: Yes (Hospitalization, Other)
  Sender: FDA-Public Use
  Company Number: CA-ELI_LILLY_AND_COMPANY-CA201006004079

PATIENT
  Age: 75 Year
  Sex: Female

DRUGS (12)
  1. FORTEO [Suspect]
     Indication: OSTEOPOROSIS
     Dosage: 20 UG, DAILY (1/D)
     Dates: start: 20080906
  2. CARDIZEM [Concomitant]
     Dosage: 180 MG, DAILY (1/D)
  3. NEXIUM [Concomitant]
     Dosage: 40 MG, DAILY (1/D)
  4. ZESTORETIC [Concomitant]
     Dosage: UNK, DAILY (1/D)
  5. ARTHROTEC [Concomitant]
     Dosage: 2 D/F, DAILY (1/D)
  6. PLAQUENIL [Concomitant]
     Dosage: 400 MG, DAILY (1/D)
  7. PLAQUENIL [Concomitant]
     Dosage: 200 MG, DAILY (1/D)
  8. SYMBICORT [Concomitant]
     Indication: EMPHYSEMA
     Dosage: UNK, AS NEEDED
  9. TYLENOL (CAPLET) [Concomitant]
     Dosage: UNK, AS NEEDED
  10. CALCIUM [Concomitant]
     Dosage: UNK, DAILY (1/D)
  11. VITAMIN D [Concomitant]
     Dosage: 1000 IU, DAILY (1/D)
  12. NSAID'S [Concomitant]

REACTIONS (6)
  - ANGINA PECTORIS [None]
  - ATRIAL FIBRILLATION [None]
  - BLOOD ALKALINE PHOSPHATASE INCREASED [None]
  - CARDIAC FAILURE CONGESTIVE [None]
  - OEDEMA PERIPHERAL [None]
  - SUPRAVENTRICULAR TACHYCARDIA [None]
